FAERS Safety Report 7012294-7 (Version None)
Quarter: 2010Q3

REPORT INFORMATION
  Report Type: 
  Country: None (occurrence: None)
  Receive Date: 20100924
  Receipt Date: 20100914
  Transmission Date: 20110219
  Serious: Yes (Other)
  Sender: FDA-Public Use
  Company Number: PT-JNJFOC-20100601032

PATIENT
  Age: 37 Year
  Sex: Male
  Weight: 70 kg

DRUGS (8)
  1. REMICADE [Suspect]
     Indication: ANKYLOSING SPONDYLITIS
     Dosage: 5 MG/KG
     Route: 042
  2. REMICADE [Suspect]
     Route: 042
  3. REMICADE [Suspect]
     Indication: PSORIATIC ARTHROPATHY
     Dosage: 5 MG/KG
     Route: 042
  4. REMICADE [Suspect]
     Route: 042
  5. REMICADE [Suspect]
     Indication: PSORIASIS
     Route: 042
  6. REMICADE [Suspect]
     Dosage: 5 MG/KG
     Route: 042
  7. HYDROCORTISONE [Concomitant]
     Indication: PREMEDICATION
  8. ANTIHISTAMINE [Concomitant]
     Indication: PREMEDICATION

REACTIONS (14)
  - ANAPHYLACTIC SHOCK [None]
  - ARTHRALGIA [None]
  - BLOOD PRESSURE INCREASED [None]
  - CHEST PAIN [None]
  - CHILLS [None]
  - DIZZINESS [None]
  - HYPOTENSION [None]
  - INFUSION RELATED REACTION [None]
  - JOINT SWELLING [None]
  - LIP SWELLING [None]
  - PAIN IN EXTREMITY [None]
  - PSORIASIS [None]
  - PYREXIA [None]
  - TACHYCARDIA [None]
